FAERS Safety Report 5181399-8 (Version None)
Quarter: 2006Q4

REPORT INFORMATION
  Report Type: 
  Country: None (occurrence: None)
  Receive Date: 20061220
  Receipt Date: 20060106
  Transmission Date: 20070319
  Serious: Yes (Other)
  Sender: FDA-Public Use
  Company Number: US-GLAXOSMITHKLINE-A0588087A

PATIENT
  Age: 44 Year
  Sex: Female

DRUGS (3)
  1. COMMIT [Suspect]
     Dosage: 4MG UNKNOWN
     Dates: start: 20060105, end: 20060105
  2. NICODERM CQ [Suspect]
  3. NICODERM CQ [Suspect]

REACTIONS (2)
  - DRUG ABUSER [None]
  - VOMITING [None]
